FAERS Safety Report 8313485-5 (Version None)
Quarter: 2012Q2

REPORT INFORMATION
  Report Type: 
  Country: None (occurrence: None)
  Receive Date: 20120426
  Receipt Date: 20120425
  Transmission Date: 20120825
  Serious: Yes (Other)
  Sender: FDA-Public Use
  Company Number: JP-PFIZER INC-2011252534

PATIENT
  Sex: Female

DRUGS (2)
  1. LYRICA [Suspect]
     Indication: PAIN
     Dosage: 150 MG DAILY
     Route: 048
  2. RIZE [Concomitant]
     Dosage: UNK

REACTIONS (5)
  - DIZZINESS [None]
  - FRACTURE [None]
  - DRUG INEFFECTIVE [None]
  - FALL [None]
  - SOMNOLENCE [None]
